FAERS Safety Report 4461729-2 (Version None)
Quarter: 2004Q3

REPORT INFORMATION
  Report Type: 
  Country: None (occurrence: None)
  Receive Date: 20040929
  Receipt Date: 20040917
  Transmission Date: 20050211
  Serious: Yes (Other)
  Sender: FDA-Public Use
  Company Number: GB-BRISTOL-MYERS SQUIBB COMPANY-12706693

PATIENT
  Age: 27 Year
  Sex: Male
  Weight: 83 kg

DRUGS (3)
  1. ARIPIPRAZOLE [Suspect]
     Indication: ASPERGER'S DISORDER
     Route: 048
     Dates: start: 20040802
  2. ARIPIPRAZOLE [Suspect]
     Indication: PSYCHOTIC DISORDER
     Route: 048
     Dates: start: 20040802
  3. LAMOTRIGINE [Concomitant]
     Indication: MOOD SWINGS
     Route: 048
     Dates: start: 20040201

REACTIONS (2)
  - TIC [None]
  - TOURETTE'S DISORDER [None]
